FAERS Safety Report 10080422 (Version 1)
Quarter: 2014Q2

REPORT INFORMATION
  Report Type: Spontaneous
  Country: US (occurrence: US)
  Receive Date: 20140416
  Receipt Date: 20140416
  Transmission Date: 20141212
  Serious: No
  Sender: FDA-Public Use
  Company Number: US-009507513-1403USA013030

PATIENT
  Sex: Male

DRUGS (1)
  1. DULERA [Suspect]
     Dosage: TWO PUFFS TWICE A DAY
     Route: 055
     Dates: start: 201301

REACTIONS (3)
  - Wrong technique in drug usage process [Unknown]
  - Product quality issue [Unknown]
  - No adverse event [Unknown]
